FAERS Safety Report 15183361 (Version 1)
Quarter: 2018Q3

REPORT INFORMATION
  Report Type: Spontaneous
  Country: NL (occurrence: NL)
  Receive Date: 20180723
  Receipt Date: 20180723
  Transmission Date: 20181010
  Serious: Yes (Hospitalization)
  Sender: FDA-Public Use
  Company Number: NL-PFIZER INC-2018267319

PATIENT
  Age: 74 Year
  Sex: Male
  Weight: 110 kg

DRUGS (19)
  1. SOMAVERT [Suspect]
     Active Substance: PEGVISOMANT
     Indication: ACROMEGALY
     Dosage: 60 MG, 1X/WEEK
     Route: 058
     Dates: start: 20170531
  2. METOPROLOL SUCCINATE. [Concomitant]
     Active Substance: METOPROLOL SUCCINATE
     Dosage: 100 MG, 1X/DAY
     Route: 048
  3. BRIMONIDINE [Concomitant]
     Active Substance: BRIMONIDINE TARTRATE
     Dosage: 1 DF, 2X/DAY (BOTH EYES)
     Route: 047
  4. FUROSEMIDE. [Concomitant]
     Active Substance: FUROSEMIDE
     Dosage: 20 MG, 1X/DAY
     Route: 048
  5. CLOPIDOGREL [Concomitant]
     Active Substance: CLOPIDOGREL BISULFATE
     Dosage: 75 MG, 1X/DAY
     Route: 048
  6. AMLODIPINE/VALSARTAN/HYDROCHLOROTHIAZIDE [Concomitant]
     Active Substance: AMLODIPINE\HYDROCHLOROTHIAZIDE\VALSARTAN
     Dosage: 10/320/25 MG, 1X/DAY
     Route: 048
  7. ALLOPURINOL. [Concomitant]
     Active Substance: ALLOPURINOL
     Dosage: 300 MG, 1X/DAY
     Route: 048
  8. TIMOLOL. [Concomitant]
     Active Substance: TIMOLOL
     Dosage: 1 DF, 1X/DAY (BOTH EYES)
     Route: 047
  9. DESLORATADINE. [Concomitant]
     Active Substance: DESLORATADINE
     Dosage: 5 MG, 1X/DAY
     Route: 048
  10. LIDOCAINE. [Concomitant]
     Active Substance: LIDOCAINE
     Dosage: 20 UNK, UNK
     Route: 048
  11. SIMVASTATINE [Concomitant]
     Active Substance: SIMVASTATIN
     Dosage: 40 MG, 1X/DAY
     Route: 048
  12. CLEMASTINE [Concomitant]
     Active Substance: CLEMASTINE
     Dosage: 1 MG, 2X/DAY
     Route: 048
  13. DALTEPARINE SODIQUE [Concomitant]
     Dosage: 1 DF, 1X/DAY
     Route: 058
  14. NYSTATINE LABAZ [Concomitant]
     Dosage: UNK
     Route: 048
  15. SIMVASTATINE A [Concomitant]
     Dosage: 40 MG, 1X/DAY
     Route: 048
  16. CARBOMERE [Concomitant]
     Dosage: UNK UNK, 3X/DAY
     Route: 047
  17. OCTREOTIDE /00821002/ [Concomitant]
     Active Substance: OCTREOTIDE ACETATE
     Dosage: 1 DF, 1X/ 4 WEEKS
     Route: 058
  18. HYALURON /00567501/ [Concomitant]
     Dosage: UNK
     Route: 047
  19. SUCRALFAAT [Concomitant]
     Dosage: 1 DF, 4X/DAY
     Route: 048

REACTIONS (7)
  - Lung neoplasm malignant [Unknown]
  - Dysphagia [Unknown]
  - Arrhythmia [Unknown]
  - Epilepsy [Unknown]
  - Renal impairment [Unknown]
  - Product use issue [Unknown]
  - Pneumonia [Unknown]

NARRATIVE: CASE EVENT DATE: 201801
